FAERS Safety Report 11137941 (Version 1)
Quarter: 2015Q2

REPORT INFORMATION
  Report Type: Spontaneous
  Country: US (occurrence: US)
  Receive Date: 20150526
  Receipt Date: 20150526
  Transmission Date: 20150821
  Serious: No
  Sender: FDA-Public Use
  Company Number: US-MALLINCKRODT-T201404483

PATIENT
  Age: 48 Year
  Sex: Female

DRUGS (2)
  1. H.P. ACTHAR [Suspect]
     Active Substance: CORTICOTROPIN
     Indication: PROTEINURIA
  2. H.P. ACTHAR [Suspect]
     Active Substance: CORTICOTROPIN
     Indication: GLOMERULONEPHRITIS
     Dosage: 40 U, BIWEEKLY
     Route: 065
     Dates: start: 20141201

REACTIONS (5)
  - Pruritus [Unknown]
  - Weight increased [Unknown]
  - Urticaria [Unknown]
  - Increased appetite [Unknown]
  - Injection site bruising [Unknown]

NARRATIVE: CASE EVENT DATE: 201412
